FAERS Safety Report 19830267 (Version 4)
Quarter: 2021Q4

REPORT INFORMATION
  Report Type: Report from Study
  Country: US (occurrence: US)
  Receive Date: 20210915
  Receipt Date: 20211022
  Transmission Date: 20220303
  Serious: No
  Sender: FDA-Public Use
  Company Number: NVSC2021US208246

PATIENT
  Sex: Male

DRUGS (1)
  1. ENTRESTO [Suspect]
     Active Substance: SACUBITRIL\VALSARTAN
     Indication: Product used for unknown indication
     Dosage: 1 DF, UNKNOWN
     Route: 048
     Dates: start: 20210909

REACTIONS (8)
  - Anxiety [Unknown]
  - Chest discomfort [Recovered/Resolved]
  - Nervousness [Unknown]
  - Weight decreased [Recovering/Resolving]
  - Malaise [Recovered/Resolved]
  - Sensory disturbance [Recovered/Resolved]
  - Dizziness [Recovered/Resolved]
  - Hypotension [Recovered/Resolved]
